FAERS Safety Report 18703856 (Version 7)
Quarter: 2023Q2

REPORT INFORMATION
  Report Type: Other
  Country: US (occurrence: None)
  Receive Date: 20210106
  Receipt Date: 20230626
  Transmission Date: 20230721
  Serious: Yes (Hospitalization, Other)
  Sender: FDA-Public Use
  Company Number: US-ROCHE-2717517

PATIENT
  Age: 64 Year
  Sex: Female
  Weight: 77.452 kg

DRUGS (8)
  1. ALECENSA [Suspect]
     Active Substance: ALECTINIB HYDROCHLORIDE
     Indication: Diverticulum intestinal
     Dosage: TAKE 4 CAPSULE(S) BY MOUTH TWICE A DAY WITH FOOD
     Route: 048
     Dates: start: 20170714, end: 20200101
  2. ALECENSA [Suspect]
     Active Substance: ALECTINIB HYDROCHLORIDE
     Indication: Uterine cancer
     Dosage: TAKES 4-150 MG TABLETS TWICE A DAY
     Route: 048
     Dates: start: 201706
  3. ALECENSA [Suspect]
     Active Substance: ALECTINIB HYDROCHLORIDE
     Indication: Lung neoplasm malignant
     Route: 048
     Dates: start: 20200924
  4. ALECENSA [Suspect]
     Active Substance: ALECTINIB HYDROCHLORIDE
     Indication: Lung adenocarcinoma
     Dosage: ONGOING-YES?TAKE 4 CAPSULE(S) BY MOUTH TWICE A DAY WITH FOOD
     Route: 048
     Dates: start: 2017
  5. ALECENSA [Suspect]
     Active Substance: ALECTINIB HYDROCHLORIDE
     Indication: Endometrial cancer
     Dosage: TAKE 4 CAPSULE(S) BY MOUTH TWICE A DAY WITH FOOD
     Route: 048
  6. KEYTRUDA [Suspect]
     Active Substance: PEMBROLIZUMAB
     Indication: Product used for unknown indication
     Route: 065
  7. ELIQUIS [Concomitant]
     Active Substance: APIXABAN
     Indication: Pulmonary embolism
  8. PREDNISONE [Concomitant]
     Active Substance: PREDNISONE
     Indication: Seizure
     Dates: start: 202006

REACTIONS (10)
  - Pulmonary embolism [Recovered/Resolved]
  - Myocardial infarction [Recovered/Resolved]
  - Intestinal resection [Recovered/Resolved]
  - COVID-19 [Recovered/Resolved]
  - Volvulus [Recovered/Resolved]
  - Thrombosis [Unknown]
  - Epistaxis [Recovered/Resolved]
  - Cortisol decreased [Unknown]
  - Nasopharyngitis [Not Recovered/Not Resolved]
  - Cognitive disorder [Unknown]

NARRATIVE: CASE EVENT DATE: 20190101
